FAERS Safety Report 10812277 (Version 1)
Quarter: 2015Q1

REPORT INFORMATION
  Report Type: Spontaneous
  Country: FR (occurrence: FR)
  Receive Date: 20150218
  Receipt Date: 20150218
  Transmission Date: 20150721
  Serious: Yes (Death, Hospitalization)
  Sender: FDA-Public Use
  Company Number: FR-ROCHE-1538374

PATIENT
  Age: 59 Year
  Sex: Female

DRUGS (22)
  1. METHOTREXATE [Concomitant]
     Active Substance: METHOTREXATE
  2. VOLTARENE [Concomitant]
     Active Substance: DICLOFENAC SODIUM
     Route: 065
  3. CIMZIA [Suspect]
     Active Substance: CERTOLIZUMAB PEGOL
     Indication: PRODUCT USED FOR UNKNOWN INDICATION
     Route: 065
     Dates: start: 20130528, end: 20130816
  4. LEVOTHYROX [Concomitant]
     Active Substance: LEVOTHYROXINE
  5. APROVEL [Concomitant]
     Active Substance: IRBESARTAN
  6. CORTANCYL [Concomitant]
     Active Substance: PREDNISONE
     Route: 065
  7. INEXIUM [Concomitant]
     Active Substance: ESOMEPRAZOLE
  8. PROCORALAN [Concomitant]
     Active Substance: IVABRADINE
  9. SPIRIVA [Concomitant]
     Active Substance: TIOTROPIUM BROMIDE MONOHYDRATE
  10. BRICANYL [Concomitant]
     Active Substance: TERBUTALINE SULFATE
  11. INEGY [Concomitant]
     Active Substance: EZETIMIBE\SIMVASTATIN
  12. CELECOXIB. [Concomitant]
     Active Substance: CELECOXIB
  13. PULMICORT TURBUHALER [Concomitant]
     Active Substance: BUDESONIDE
  14. LASILIX [Concomitant]
     Active Substance: FUROSEMIDE
  15. ISOPTIN [Concomitant]
     Active Substance: VERAPAMIL HYDROCHLORIDE
  16. SYSTANE (HYPROMELLOSE 2910 (4000 MPA.S)) [Concomitant]
     Active Substance: HYPROMELLOSE 2910 (4000 MPA.S)
  17. MABTHERA [Suspect]
     Active Substance: RITUXIMAB
     Indication: RHEUMATOID ARTHRITIS
     Route: 041
     Dates: end: 20130527
  18. HYDROCORTISONE. [Concomitant]
     Active Substance: HYDROCORTISONE
  19. PLAVIX [Concomitant]
     Active Substance: CLOPIDOGREL BISULFATE
     Route: 065
  20. PLAVIX [Concomitant]
     Active Substance: CLOPIDOGREL BISULFATE
     Route: 065
  21. CORTANCYL [Concomitant]
     Active Substance: PREDNISONE
     Route: 065
  22. DOMPERIDONE [Concomitant]
     Active Substance: DOMPERIDONE

REACTIONS (4)
  - Dysphagia [Not Recovered/Not Resolved]
  - Neuromyelitis optica [Fatal]
  - Quadriparesis [Fatal]
  - Diplopia [Recovered/Resolved]

NARRATIVE: CASE EVENT DATE: 20130801
